FAERS Safety Report 14964415 (Version 3)
Quarter: 2018Q3

REPORT INFORMATION
  Report Type: Spontaneous
  Country: FR (occurrence: FR)
  Receive Date: 20180601
  Receipt Date: 20180727
  Transmission Date: 20181010
  Serious: Yes (Other)
  Sender: FDA-Public Use
  Company Number: FR-PFIZER INC-2018219991

PATIENT
  Age: 86 Year
  Sex: Female
  Weight: 61 kg

DRUGS (5)
  1. FRAGMINE [Suspect]
     Active Substance: DALTEPARIN SODIUM
     Indication: EMBOLISM
     Dosage: 30 MG, 1X/DAY
     Route: 058
     Dates: start: 20180314
  2. IMOVANE [Concomitant]
     Active Substance: ZOPICLONE
     Indication: INSOMNIA
     Dosage: 3.75 MG, 1X/DAY
     Route: 048
     Dates: start: 20180220
  3. LOXAPAC [Suspect]
     Active Substance: LOXAPINE
     Indication: PSYCHOTIC DISORDER
     Dosage: 15 GTT, 1X/DAY
     Route: 048
     Dates: start: 20180226
  4. SERESTA [Concomitant]
     Active Substance: OXAZEPAM
     Indication: ANXIETY
     Dosage: 10 MG, 1X/DAY
     Route: 048
     Dates: start: 20180220
  5. MIRTAZAPINE ARROW [Suspect]
     Active Substance: MIRTAZAPINE
     Indication: ADJUSTMENT DISORDER WITH DEPRESSED MOOD
     Dosage: 30 MG, 1X/DAY
     Route: 048
     Dates: start: 20180220, end: 20180321

REACTIONS (1)
  - Leukopenia [Not Recovered/Not Resolved]

NARRATIVE: CASE EVENT DATE: 20180320
